FAERS Safety Report 5144192-8 (Version None)
Quarter: 2006Q4

REPORT INFORMATION
  Report Type: 
  Country: None (occurrence: None)
  Receive Date: 20061106
  Receipt Date: 20061027
  Transmission Date: 20070319
  Serious: Yes (Other)
  Sender: FDA-Public Use
  Company Number: DE-JNJFOC-20061006606

PATIENT
  Age: 38 Year
  Sex: Female

DRUGS (3)
  1. REMICADE [Suspect]
     Indication: CROHN'S DISEASE
     Dosage: INITIATED 1 WEEK PRIOR TO THE REPORT
     Route: 042
  2. METHOTREXATE [Concomitant]
     Dosage: DISCONTINUED 1 WEEK PRIOR TO THE REPORT
     Route: 065
  3. MESALAZINE [Concomitant]
     Route: 065

REACTIONS (1)
  - LIPASE INCREASED [None]
